FAERS Safety Report 25079168 (Version 1)
Quarter: 2025Q1

REPORT INFORMATION
  Report Type: Spontaneous
  Country: US (occurrence: US)
  Receive Date: 20250314
  Receipt Date: 20250314
  Transmission Date: 20250408
  Serious: No
  Sender: SANOFI AVENTIS
  Company Number: US-SA-2025SA075593

PATIENT
  Age: 74 Year
  Sex: Female
  Weight: 56.82 kg

DRUGS (18)
  1. DUPIXENT [Suspect]
     Active Substance: DUPILUMAB
     Indication: Eosinophilia
     Dosage: 300 MG, QOW
     Route: 058
     Dates: start: 20240727
  2. DUPIXENT [Suspect]
     Active Substance: DUPILUMAB
     Indication: Asthma
  3. PREDNISONE [Suspect]
     Active Substance: PREDNISONE
  4. ROFLUMILAST [Concomitant]
     Active Substance: ROFLUMILAST
  5. VITAMIN C [Concomitant]
     Active Substance: ASCORBIC ACID
  6. VENTOLIN HFA [Concomitant]
     Active Substance: ALBUTEROL SULFATE
  7. VALACYCLOVIR [Concomitant]
     Active Substance: VALACYCLOVIR HYDROCHLORIDE
  8. SPIRIVA RESPIMAT [Concomitant]
     Active Substance: TIOTROPIUM BROMIDE
     Route: 055
  9. DALIRESP [Concomitant]
     Active Substance: ROFLUMILAST
  10. MINERALS\VITAMINS [Concomitant]
     Active Substance: MINERALS\VITAMINS
  11. MUCINEX [Concomitant]
     Active Substance: GUAIFENESIN
  12. MONTELUKAST SODIUM [Concomitant]
     Active Substance: MONTELUKAST SODIUM
  13. EPINEPHRINE [Concomitant]
     Active Substance: EPINEPHRINE
  14. DULERA [Concomitant]
     Active Substance: FORMOTEROL FUMARATE DIHYDRATE\MOMETASONE FUROATE
  15. CALCIUM\CHOLECALCIFEROL [Concomitant]
     Active Substance: CALCIUM\CHOLECALCIFEROL
  16. PULMICORT FLEXHALER [Concomitant]
     Active Substance: BUDESONIDE
  17. ATORVASTATIN CALCIUM [Concomitant]
     Active Substance: ATORVASTATIN CALCIUM
  18. MELATONIN [Concomitant]
     Active Substance: MELATONIN

REACTIONS (5)
  - Vomiting [Recovering/Resolving]
  - Vertigo [Unknown]
  - Dizziness [Unknown]
  - Nasopharyngitis [Unknown]
  - Product use in unapproved indication [Unknown]

NARRATIVE: CASE EVENT DATE: 20240727
